FAERS Safety Report 4434770-3 (Version None)
Quarter: 2004Q3

REPORT INFORMATION
  Report Type: 
  Country: None (occurrence: None)
  Receive Date: 20040726
  Receipt Date: 20040414
  Transmission Date: 20050211
  Serious: No
  Sender: FDA-Public Use
  Company Number: USA030127299

PATIENT
  Age: 55 Year
  Sex: Female
  Weight: 64 kg

DRUGS (12)
  1. FORTEO [Suspect]
     Indication: BONE DENSITY DECREASED
     Dosage: 20 UG/DAY
     Dates: start: 20030127
  2. FORTEO [Suspect]
     Indication: OSTEOPOROSIS
     Dosage: 20 UG/DAY
     Dates: start: 20030127
  3. CALCIUM [Concomitant]
  4. CLARITIN-D [Concomitant]
  5. ESTROGEN NOS [Concomitant]
  6. FOSAMAX [Concomitant]
  7. NEXIUM [Concomitant]
  8. PREMARIN [Concomitant]
  9. MAVIK [Concomitant]
  10. BIOTIN [Concomitant]
  11. MAGNESIUM [Concomitant]
  12. ALLEGRA [Concomitant]

REACTIONS (3)
  - INJECTION SITE ERYTHEMA [None]
  - NAIL DISORDER [None]
  - RASH PRURITIC [None]
